FAERS Safety Report 9970939 (Version 1)
Quarter: 2014Q1

REPORT INFORMATION
  Report Type: Report from Study
  Country: US (occurrence: US)
  Receive Date: 20140306
  Receipt Date: 20140306
  Transmission Date: 20141002
  Serious: No
  Sender: FDA-Public Use
  Company Number: US-ABBVIE-13P-163-1153373-00

PATIENT
  Age: 41 Year
  Sex: Male

DRUGS (5)
  1. HUMIRA [Suspect]
     Indication: PSORIASIS
     Dates: start: 20130724
  2. TRAZODONE [Concomitant]
     Indication: INSOMNIA
     Dosage: AT BEDTIME
  3. ZOLOFT [Concomitant]
     Indication: DEPRESSION
     Dosage: 200 MG DAILY
  4. KETOCONAZOLE [Concomitant]
     Indication: PSORIASIS
     Route: 061
  5. CLOBETASOL PROPIONATE [Concomitant]
     Indication: SKIN DISORDER
     Route: 061

REACTIONS (1)
  - Psoriasis [Not Recovered/Not Resolved]
